FAERS Safety Report 8824429 (Version 2)
Quarter: 2012Q4

REPORT INFORMATION
  Report Type: 
  Country: GB (occurrence: GB)
  Receive Date: 20121004
  Receipt Date: 20121023
  Transmission Date: 20130627
  Serious: Yes (Death, Life-Threatening, Hospitalization, Disabling, Other)
  Sender: FDA-Public Use
  Company Number: GB-MPIJNJ-2012-06749

PATIENT

DRUGS (4)
  1. VELCADE [Suspect]
     Indication: MULTIPLE MYELOMA
     Dosage: 1.3 mg/m2, UNK
     Route: 058
     Dates: start: 20120706, end: 20120907
  2. DEXAMETHASONE [Concomitant]
     Dosage: 20 mg, UNK
     Dates: start: 20120706, end: 20120901
  3. CYCLOPHOSPHAMIDE [Concomitant]
     Indication: MULTIPLE MYELOMA
     Dosage: 500 mg, UNK
     Dates: start: 20120810, end: 20120831
  4. ZOMETA [Concomitant]
     Dosage: 4 mg, UNK
     Dates: start: 20110504, end: 20120921

REACTIONS (5)
  - Drug ineffective [Fatal]
  - IIIrd nerve paralysis [Unknown]
  - Hyperviscosity syndrome [Unknown]
  - Hypercalcaemia [Unknown]
  - Paraesthesia [Unknown]
